FAERS Safety Report 8634612 (Version 3)
Quarter: 2013Q4

REPORT INFORMATION
  Report Type: Spontaneous
  Country: US (occurrence: US)
  Receive Date: 20120626
  Receipt Date: 20131004
  Transmission Date: 20140711
  Serious: Yes (Hospitalization)
  Sender: FDA-Public Use
  Company Number: US-BAYER-2012-061269

PATIENT
  Age: 32 Year
  Sex: Female
  Weight: 56.69 kg

DRUGS (15)
  1. YASMIN [Suspect]
     Indication: CONTRACEPTION
     Dosage: UNK
     Dates: start: 1995, end: 20110530
  2. YASMIN [Suspect]
     Indication: ACNE
     Dosage: UNK
     Dates: start: 2000, end: 2006
  3. YAZ [Suspect]
     Indication: CONTRACEPTION
     Dosage: UNK
     Dates: start: 1995, end: 20110530
  4. YAZ [Suspect]
     Indication: ACNE
     Dosage: UNK
     Dates: start: 2006, end: 2010
  5. GIANVI [Suspect]
     Indication: CONTRACEPTION
     Dosage: UNK
     Dates: start: 1995, end: 20110530
  6. GIANVI [Suspect]
     Indication: ACNE
     Dosage: UNK
     Dates: start: 2010, end: 2011
  7. TYLENOL [Concomitant]
     Dosage: UNK UNK, PRN
  8. GAS [Concomitant]
  9. AMITRIPTYLINE HCL [Concomitant]
     Dosage: 25 MG, UNK
     Route: 048
  10. LORTAB [Concomitant]
     Route: 048
  11. TRIAMCINOLONE [Concomitant]
     Dosage: 0.1 % CREAM
     Route: 061
  12. MULTIVITAMIN [Concomitant]
  13. FISH OIL [Concomitant]
  14. CALCIUM [CALCIUM] [Concomitant]
  15. FIBER [Concomitant]

REACTIONS (4)
  - Deep vein thrombosis [None]
  - Thrombosis [None]
  - Pain [None]
  - Pain [None]
